FAERS Safety Report 5288346-9 (Version None)
Quarter: 2007Q2

REPORT INFORMATION
  Report Type: 
  Country: None (occurrence: None)
  Receive Date: 20070405
  Receipt Date: 20070329
  Transmission Date: 20071010
  Serious: Yes (Other)
  Sender: FDA-Public Use
  Company Number: 2007UW06449

PATIENT
  Age: 65 Year
  Sex: Female

DRUGS (3)
  1. SYMBICORT [Suspect]
     Indication: PNEUMONIA
     Dosage: 320/9 UG
     Route: 055
     Dates: start: 20070324, end: 20070326
  2. MODURETIC 5-50 [Concomitant]
     Indication: HYPERTENSION
     Route: 048
  3. PANTOPRAZOLE [Concomitant]
     Indication: GASTRITIS
     Route: 048

REACTIONS (6)
  - ACCIDENTAL OVERDOSE [None]
  - ASTHENIA [None]
  - BLOOD PRESSURE INCREASED [None]
  - DIZZINESS [None]
  - TACHYCARDIA [None]
  - VOMITING [None]
